FAERS Safety Report 24792309 (Version 1)
Quarter: 2024Q4

REPORT INFORMATION
  Report Type: Spontaneous
  Country: FR (occurrence: FR)
  Receive Date: 20241231
  Receipt Date: 20241231
  Transmission Date: 20250115
  Serious: Yes (Hospitalization, Other)
  Sender: AUROBINDO
  Company Number: FR-AFSSAPS-ST2024001784

PATIENT
  Age: 52 Year
  Sex: Female
  Weight: 80 kg

DRUGS (1)
  1. TAMOXIFEN CITRATE [Suspect]
     Active Substance: TAMOXIFEN CITRATE
     Indication: Breast cancer
     Dosage: 20 MILLIGRAM, ONCE A DAY
     Route: 048
     Dates: start: 202103, end: 20241205

REACTIONS (1)
  - Vena cava thrombosis [Recovering/Resolving]

NARRATIVE: CASE EVENT DATE: 20241125
